FAERS Safety Report 12902399 (Version 1)
Quarter: 2016Q4

REPORT INFORMATION
  Report Type: Spontaneous
  Country: US (occurrence: US)
  Receive Date: 20161102
  Receipt Date: 20161102
  Transmission Date: 20170207
  Serious: No
  Sender: FDA-Public Use
  Company Number: US-TARGET PREMIER BRANDS OF AMERICA INC.-1059153

PATIENT
  Age: 18 Year
  Sex: Female

DRUGS (1)
  1. ODOR FIGHTING ANTIFUNGAL POWDER SPRAY [Suspect]
     Active Substance: TOLNAFTATE
     Route: 003
     Dates: start: 20160921, end: 20160922

REACTIONS (1)
  - Application site rash [Recovering/Resolving]

NARRATIVE: CASE EVENT DATE: 20160921
